FAERS Safety Report 8812086 (Version 1)
Quarter: 2012Q4

REPORT INFORMATION
  Report Type: 
  Country: US (occurrence: US)
  Receive Date: 20120927
  Receipt Date: 20120927
  Transmission Date: 20130627
  Serious: Yes (Other)
  Sender: FDA-Public Use
  Company Number: US-GILEAD-2012-0060300

PATIENT
  Age: 64 Year
  Sex: Female

DRUGS (8)
  1. VIREAD [Suspect]
     Indication: HEPATITIS B
  2. HEPATITIS B IMMUNE GLOBULIN (HUMAN) [Suspect]
     Indication: ANTIVIRAL PROPHYLAXIS
     Dosage: UNK
     Route: 042
     Dates: start: 20120819, end: 20120824
  3. TACROLIMUS [Concomitant]
     Indication: LIVER TRANSPLANT
     Dosage: 2 mg, QD
     Route: 048
     Dates: start: 20120819
  4. MYCOPHENOLATE [Concomitant]
     Indication: LIVER TRANSPLANT
     Dosage: 500 mg, QD
     Route: 048
     Dates: start: 20120819, end: 20120823
  5. FAMOTIDINE [Concomitant]
     Indication: PROPHYLAXIS AGAINST GASTROINTESTINAL ULCER
     Dosage: 20 mg, QD
     Route: 048
     Dates: start: 20120820, end: 20120824
  6. FENTANYL [Concomitant]
     Indication: PAIN
     Dosage: UNK
     Route: 042
     Dates: start: 20120819
  7. MIDAZOLAM [Concomitant]
     Indication: SEDATION
     Dosage: UNK
     Route: 042
     Dates: start: 20120819
  8. MORPHINE [Concomitant]
     Indication: PAIN
     Dosage: 2 mg, UNK
     Route: 042
     Dates: start: 20120819, end: 20120824

REACTIONS (1)
  - Acute respiratory distress syndrome [Not Recovered/Not Resolved]
